FAERS Safety Report 4646747-3 (Version None)
Quarter: 2005Q2

REPORT INFORMATION
  Report Type: 
  Country: None (occurrence: None)
  Receive Date: 20050422
  Receipt Date: 20050422
  Transmission Date: 20051028
  Serious: Yes (Other)
  Sender: FDA-Public Use
  Company Number: None

PATIENT
  Age: 57 Year
  Sex: Male
  Weight: 97.1 kg

DRUGS (7)
  1. SIMVASTATIN [Suspect]
  2. METFORMIN HCL [Concomitant]
  3. GLYBURIDE [Concomitant]
  4. SIMVASTATIN [Concomitant]
  5. CLOPIDOGREL BISULFATE [Concomitant]
  6. METOPROLOL SUCCINATE [Concomitant]
  7. RAMIPRIL [Concomitant]

REACTIONS (1)
  - MYALGIA [None]
